FAERS Safety Report 20031511 (Version 1)
Quarter: 2021Q4

REPORT INFORMATION
  Report Type: Spontaneous
  Country: IT (occurrence: IT)
  Receive Date: 20211103
  Receipt Date: 20211103
  Transmission Date: 20220303
  Serious: Yes (Other)
  Sender: FDA-Public Use
  Company Number: IT-ABBVIE-21K-083-4138396-00

PATIENT
  Age: 30 Month
  Sex: Female

DRUGS (6)
  1. VALPROIC ACID [Suspect]
     Active Substance: VALPROIC ACID
     Indication: Status epilepticus
     Route: 065
  2. PHENYTOIN [Interacting]
     Active Substance: PHENYTOIN
     Indication: Status epilepticus
     Route: 040
  3. PHENYTOIN [Interacting]
     Active Substance: PHENYTOIN
     Route: 048
  4. CARBAMAZEPINE [Interacting]
     Active Substance: CARBAMAZEPINE
     Indication: Status epilepticus
     Route: 065
  5. LEVETIRACETAM [Suspect]
     Active Substance: LEVETIRACETAM
     Indication: Status epilepticus
     Route: 065
  6. MIDAZOLAM [Suspect]
     Active Substance: MIDAZOLAM
     Indication: Status epilepticus
     Route: 042

REACTIONS (2)
  - Leukopenia [Unknown]
  - Drug interaction [Not Recovered/Not Resolved]
